FAERS Safety Report 25832307 (Version 1)
Quarter: 2025Q3

REPORT INFORMATION
  Report Type: Spontaneous
  Country: US (occurrence: None)
  Receive Date: 20250921
  Receipt Date: 20250921
  Transmission Date: 20251021
  Serious: Yes (Hospitalization)
  Sender: FDA-CTU
  Company Number: None

PATIENT
  Sex: Male

DRUGS (4)
  1. ABIRATERONE ACETATE [Suspect]
     Active Substance: ABIRATERONE ACETATE
     Indication: Prostate cancer
     Dosage: FREQUENCY : DAILY;?
     Route: 048
     Dates: start: 20220105
  2. ELIGARD [Concomitant]
     Active Substance: LEUPROLIDE ACETATE
  3. PREDNISONE [Concomitant]
     Active Substance: PREDNISONE
  4. BRILINTA [Suspect]
     Active Substance: TICAGRELOR

REACTIONS (3)
  - Haemorrhage urinary tract [None]
  - Nephrolithiasis [None]
  - Internal haemorrhage [None]
